FAERS Safety Report 11289037 (Version 1)
Quarter: 2015Q3

REPORT INFORMATION
  Report Type: Spontaneous
  Country: GB (occurrence: GB)
  Receive Date: 20150721
  Receipt Date: 20150721
  Transmission Date: 20151125
  Serious: Yes (Other)
  Sender: FDA-Public Use
  Company Number: GB-TEVA-578446ACC

PATIENT
  Age: 51 Year
  Sex: Female

DRUGS (1)
  1. VALPROIC ACID. [Suspect]
     Active Substance: VALPROIC ACID
     Indication: EPILEPSY
     Dosage: 1000 MILLIGRAM DAILY; DOSE INCREASED IN MARCH 2014
     Route: 048

REACTIONS (2)
  - Neutropenia [Unknown]
  - Condition aggravated [Unknown]
